FAERS Safety Report 19465190 (Version 1)
Quarter: 2021Q2

REPORT INFORMATION
  Report Type: Spontaneous
  Country: US (occurrence: US)
  Receive Date: 20210624
  Receipt Date: 20210624
  Transmission Date: 20210717
  Serious: Yes (Hospitalization)
  Sender: FDA-Public Use
  Company Number: US-BRACCO-2020US02969

PATIENT
  Age: 80 Year
  Sex: Male

DRUGS (1)
  1. MULTIHANCE [Suspect]
     Active Substance: GADOBENATE DIMEGLUMINE
     Indication: MAGNETIC RESONANCE IMAGING HEAD
     Dosage: 20 ML, SINGLE
     Route: 042
     Dates: start: 20200715, end: 20200715

REACTIONS (4)
  - General physical condition abnormal [Unknown]
  - Dyspnoea [Unknown]
  - Feeling hot [Unknown]
  - Cyanosis [Unknown]

NARRATIVE: CASE EVENT DATE: 20200715
